FAERS Safety Report 9228789 (Version 1)
Quarter: 2013Q2

REPORT INFORMATION
  Report Type: Spontaneous
  Country: CH (occurrence: CH)
  Receive Date: 20130412
  Receipt Date: 20130412
  Transmission Date: 20140414
  Serious: Yes (Other)
  Sender: FDA-Public Use
  Company Number: CH-BAYER-2013-046069

PATIENT
  Age: 7 Year
  Sex: Male
  Weight: 34 kg

DRUGS (1)
  1. ASPIRIN KAUTABLETTEN [Suspect]
     Dosage: 500 MG, ONCE
     Route: 048
     Dates: start: 20130208, end: 20130208

REACTIONS (2)
  - Type I hypersensitivity [Unknown]
  - Angioedema [Unknown]
